FAERS Safety Report 8492056-4 (Version None)
Quarter: 2012Q3

REPORT INFORMATION
  Report Type: 
  Country: None (occurrence: None)
  Receive Date: 20120706
  Receipt Date: 20120702
  Transmission Date: 20120928
  Serious: Yes (Other)
  Sender: FDA-Public Use
  Company Number: US-PFIZER INC-2012159362

PATIENT
  Sex: Female

DRUGS (11)
  1. CELEXA [Concomitant]
     Dosage: UNK
  2. TRAZODONE [Concomitant]
     Dosage: UNK
  3. ASCORBIC ACID [Concomitant]
     Dosage: UNK
  4. LYRICA [Suspect]
     Dosage: UNK
     Route: 048
  5. METHADONE [Concomitant]
     Dosage: UNK
  6. ADDERALL 5 [Concomitant]
     Dosage: UNK
  7. VITAMIN E [Concomitant]
     Dosage: UNK
  8. CALCIUM WITH VITAMIN D [Concomitant]
     Dosage: UNK
  9. PERCOCET [Concomitant]
     Dosage: UNK
  10. SOMA [Concomitant]
     Dosage: UNK
  11. VOLTAREN [Concomitant]
     Dosage: UNK

REACTIONS (1)
  - SPINAL CORD INJURY [None]
